FAERS Safety Report 18879600 (Version 1)
Quarter: 2021Q1

REPORT INFORMATION
  Report Type: Spontaneous
  Country: US (occurrence: US)
  Receive Date: 20210211
  Receipt Date: 20210211
  Transmission Date: 20210420
  Serious: Yes (Hospitalization, Other)
  Sender: FDA-Public Use
  Company Number: US-ASTELLAS-2003US005608

PATIENT
  Age: 48 Year
  Sex: Male
  Weight: 58 kg

DRUGS (14)
  1. PROGRAF [Suspect]
     Active Substance: TACROLIMUS
     Indication: LIVER TRANSPLANT
     Route: 048
  2. PROGRAF [Interacting]
     Active Substance: TACROLIMUS
     Dosage: 1 MG, TOTAL DOSE (ONE DOSE)
     Route: 048
  3. KALETRA [Interacting]
     Active Substance: LOPINAVIR\RITONAVIR
     Indication: HIV INFECTION
     Dosage: 3 DF (133.3 MG/33.3 MG), TWICE DAILY
     Route: 048
  4. TRIMETHOPRIM SULFAMETHOXAZOLE [Concomitant]
     Active Substance: SULFAMETHOXAZOLE\TRIMETHOPRIM
     Indication: INFECTION PROPHYLAXIS
     Dosage: 800 MG/160 MG, THRICE WEEKLY
     Route: 065
  5. PROGRAF [Interacting]
     Active Substance: TACROLIMUS
     Dosage: 1 MG, TWICE DAILY (DAY 140)
     Route: 048
  6. NYSTATIN. [Concomitant]
     Active Substance: NYSTATIN
     Indication: INFECTION PROPHYLAXIS
     Route: 065
  7. PROGRAF [Interacting]
     Active Substance: TACROLIMUS
     Route: 048
  8. ACYCLOVIR [ACICLOVIR] [Concomitant]
     Active Substance: ACYCLOVIR
     Indication: INFECTION PROPHYLAXIS
     Route: 065
  9. LAMIVUDINE AND ZIDOVUDINE [Concomitant]
     Active Substance: LAMIVUDINE\ZIDOVUDINE
     Indication: HIV INFECTION
     Dosage: 1 DF (150MG/300 MG), TWICE DAILY
     Route: 048
  10. PROGRAF [Interacting]
     Active Substance: TACROLIMUS
     Dosage: 0.5 MG, TOTAL DOSE (ONE DOSE, DAY 35)
     Route: 048
  11. PROGRAF [Interacting]
     Active Substance: TACROLIMUS
     Dosage: 0.5 MG, UNKNOWN FREQ. (3 DOSES OVER NEXT 2 WEEKS)
     Route: 048
  12. PROGRAF [Interacting]
     Active Substance: TACROLIMUS
     Dosage: 0.5 MG, ONCE WEEKLY (DAY 55)
     Route: 048
  13. PROGRAF [Interacting]
     Active Substance: TACROLIMUS
     Dosage: 0.5 MG, TOTAL DOSE (ONE DOSE, DAY 135)
     Route: 048
  14. PROGRAF [Interacting]
     Active Substance: TACROLIMUS
     Dosage: 0.5 MG, ONCE WEEKLY
     Route: 048

REACTIONS (10)
  - Nephropathy toxic [Recovering/Resolving]
  - Biliary obstruction [Recovered/Resolved]
  - Cytomegalovirus infection [Unknown]
  - Drug interaction [Unknown]
  - Mental status changes [Recovered/Resolved]
  - Immunosuppressant drug level increased [Recovered/Resolved]
  - Insomnia [Unknown]
  - Viral diarrhoea [Unknown]
  - Tremor [Unknown]
  - Hepatitis C [Unknown]
